FAERS Safety Report 5147759-6 (Version None)
Quarter: 2006Q4

REPORT INFORMATION
  Report Type: 
  Country: None (occurrence: None)
  Receive Date: 20061110
  Receipt Date: 20061020
  Transmission Date: 20070319
  Serious: Yes (Other)
  Sender: FDA-Public Use
  Company Number: PHHO2006BR17531

PATIENT
  Age: 48 Year
  Sex: Female
  Weight: 47.5 kg

DRUGS (7)
  1. COMBIPATCH [Suspect]
     Indication: MENOPAUSE
     Dosage: TWICE A WEEK
     Route: 062
  2. MOTILIUM [Concomitant]
  3. PANTOPRAZOLE SODIUM [Concomitant]
  4. NATRILIX - SLOW RELEASE [Concomitant]
  5. FLIXONASE [Concomitant]
  6. PROCTO-GLYVENOL [Concomitant]
  7. ZELMAC / HTF 919A [Suspect]
     Dosage: 1 OR 2 TABLETS BID
     Route: 048
     Dates: start: 20060801

REACTIONS (8)
  - ABDOMINAL PAIN [None]
  - FATIGUE [None]
  - HOT FLUSH [None]
  - INSOMNIA [None]
  - MENOPAUSE [None]
  - MENORRHAGIA [None]
  - MENSTRUATION IRREGULAR [None]
  - SOMNOLENCE [None]
